FAERS Safety Report 14976562 (Version 2)
Quarter: 2018Q3

REPORT INFORMATION
  Report Type: Spontaneous
  Country: US (occurrence: US)
  Receive Date: 20180605
  Receipt Date: 20180712
  Transmission Date: 20181010
  Serious: No
  Sender: FDA-Public Use
  Company Number: US-SA-2018SA143932

PATIENT
  Sex: Female

DRUGS (4)
  1. TOUJEO [Suspect]
     Active Substance: INSULIN GLARGINE
     Dosage: UNK, QD
  2. HUMALOG [Concomitant]
     Active Substance: INSULIN LISPRO
  3. HUMULIN NOS [Concomitant]
     Active Substance: INSULIN HUMAN
  4. VICTOZA [Concomitant]
     Active Substance: LIRAGLUTIDE

REACTIONS (3)
  - Device issue [Unknown]
  - Blood glucose increased [Unknown]
  - Intentional product misuse [Unknown]
